FAERS Safety Report 16667377 (Version 1)
Quarter: 2019Q3

REPORT INFORMATION
  Report Type: Spontaneous
  Country: FR (occurrence: FR)
  Receive Date: 20190805
  Receipt Date: 20190805
  Transmission Date: 20191004
  Serious: Yes (Life-Threatening, Other)
  Sender: FDA-Public Use
  Company Number: FR-BRISTOL-MYERS SQUIBB COMPANY-BMS-2019-074557

PATIENT
  Sex: Female
  Weight: 56 kg

DRUGS (1)
  1. ELIQUIS [Suspect]
     Active Substance: APIXABAN
     Indication: CEREBROVASCULAR ACCIDENT PROPHYLAXIS
     Dosage: 10 MILLIGRAM PER DAY
     Route: 048
     Dates: start: 20180220, end: 20190618

REACTIONS (3)
  - Incorrect dosage administered [Recovered/Resolved]
  - Cerebral haemorrhage [Recovered/Resolved with Sequelae]
  - Product prescribing error [Recovered/Resolved]

NARRATIVE: CASE EVENT DATE: 20180220
